FAERS Safety Report 21149412 (Version 1)
Quarter: 2022Q3

REPORT INFORMATION
  Report Type: Report from Study
  Country: CN (occurrence: CN)
  Receive Date: 20220729
  Receipt Date: 20220729
  Transmission Date: 20221027
  Serious: Yes (Death, Life-Threatening, Hospitalization, Other)
  Sender: FDA-Public Use
  Company Number: CN-JNJFOC-20220748766

PATIENT

DRUGS (1)
  1. STELARA [Suspect]
     Active Substance: USTEKINUMAB
     Indication: Product used for unknown indication
     Route: 058

REACTIONS (4)
  - Tuberculosis [Fatal]
  - Hepatic failure [Unknown]
  - Atypical mycobacterial infection [Unknown]
  - Hepatitis B [Unknown]
